FAERS Safety Report 10142746 (Version 3)
Quarter: 2014Q3

REPORT INFORMATION
  Report Type: Spontaneous
  Country: US (occurrence: None)
  Receive Date: 20140425
  Receipt Date: 20140801
  Transmission Date: 20150326
  Serious: Yes (Hospitalization)
  Sender: FDA-Public Use
  Company Number: UTC-046720

PATIENT
  Age: 63 Year
  Sex: Female
  Weight: 68 kg

DRUGS (4)
  1. WARFARIN [Concomitant]
     Active Substance: WARFARIN
  2. LETAIRIS [Concomitant]
     Active Substance: AMBRISENTAN
  3. REMODULIN [Suspect]
     Active Substance: TREPROSTINIL
     Indication: PULMONARY ARTERIAL HYPERTENSION
     Dosage: 36 UG/KG (0.025 UG/KG, 1 IN 1 MIN),SUBCUTANEOUS
     Route: 058
     Dates: start: 20130909
  4. REVATIO [Concomitant]
     Active Substance: SILDENAFIL CITRATE

REACTIONS (9)
  - Back pain [None]
  - Thrombosis in device [None]
  - Device dislocation [None]
  - Spinal fracture [None]
  - Drug dose omission [None]
  - Mobility decreased [None]
  - Discomfort [None]
  - Muscle spasms [None]
  - Pain [None]
